FAERS Safety Report 9728250 (Version 3)
Quarter: 2013Q4

REPORT INFORMATION
  Report Type: Spontaneous
  Country: US (occurrence: US)
  Receive Date: 20131204
  Receipt Date: 20131209
  Transmission Date: 20140711
  Serious: Yes (Hospitalization)
  Sender: FDA-Public Use
  Company Number: US-JNJFOC-20131018193

PATIENT
  Age: 37 Year
  Sex: Female
  Weight: 54.43 kg

DRUGS (2)
  1. ELMIRON [Suspect]
     Indication: CYSTITIS INTERSTITIAL
     Route: 048
     Dates: start: 200001, end: 20070530
  2. PAXIL [Concomitant]
     Indication: ANTIDEPRESSANT THERAPY
     Route: 048
     Dates: start: 2007

REACTIONS (1)
  - Urinary tract infection [Not Recovered/Not Resolved]
